FAERS Safety Report 7897776-8 (Version None)
Quarter: 2011Q4

REPORT INFORMATION
  Report Type: 
  Country: None (occurrence: None)
  Receive Date: 20111107
  Receipt Date: 20111104
  Transmission Date: 20120403
  Serious: Yes (Hospitalization)
  Sender: FDA-Public Use
  Company Number: ES-ROCHE-1006370

PATIENT
  Sex: Male
  Weight: 107 kg

DRUGS (2)
  1. AVASTIN [Suspect]
     Indication: GLIOBLASTOMA
     Dosage: DATE OF LAST DOSE PRIOR TO SAE: 10 OCT 2011
     Route: 042
     Dates: start: 20110125
  2. TEMOZOLOMIDE [Suspect]
     Indication: GLIOBLASTOMA
     Dosage: DATE OF LAST DOSE PRIOR SAE: 09 SEP 2011
     Route: 048
     Dates: start: 20110125

REACTIONS (1)
  - CONVULSION [None]
